FAERS Safety Report 9216506 (Version 1)
Quarter: 2013Q2

REPORT INFORMATION
  Report Type: Spontaneous
  Country: US (occurrence: US)
  Receive Date: 20130408
  Receipt Date: 20130408
  Transmission Date: 20140414
  Serious: Yes (Life-Threatening, Disabling)
  Sender: FDA-Public Use
  Company Number: US-ELI_LILLY_AND_COMPANY-US201303009974

PATIENT
  Age: 87 Year
  Sex: Female
  Weight: 48.5 kg

DRUGS (15)
  1. EVISTA [Suspect]
     Indication: OSTEOPOROSIS
     Dosage: UNK
  2. LAMOTRIGINE [Interacting]
     Indication: CONVULSION
     Dosage: 25 MG, UNK
     Route: 048
  3. LAMOTRIGINE [Interacting]
     Dosage: 50 MG, QD
     Route: 048
  4. LAMOTRIGINE [Interacting]
     Dosage: 75 MG, QD
     Route: 048
  5. DIVALPROEX SODIUM [Concomitant]
     Indication: CONVULSION
     Dosage: UNK
     Dates: end: 201201
  6. CLONIDINE [Concomitant]
  7. BUSPIRONE [Concomitant]
  8. AMITRIPTYLINE [Concomitant]
  9. RANITIDINE HYDROCHLORIDE [Concomitant]
  10. ASPIRIN [Concomitant]
  11. CYANOCOBALAMIN [Concomitant]
  12. FOLIC ACID [Concomitant]
  13. CALCIUM [Concomitant]
  14. VITAMIN D [Concomitant]
  15. COLECALCIFEROL [Concomitant]

REACTIONS (19)
  - Convulsion [Recovering/Resolving]
  - Pruritus [Recovered/Resolved]
  - Abdominal discomfort [Unknown]
  - Decreased appetite [Unknown]
  - Fear of eating [Unknown]
  - Sleep disorder [Unknown]
  - Diverticulitis [Not Recovered/Not Resolved]
  - Hernia [Unknown]
  - Oxygen saturation decreased [Unknown]
  - Iron deficiency [Unknown]
  - Drug interaction [Unknown]
  - Gastrointestinal stenosis [Not Recovered/Not Resolved]
  - Cerebral microangiopathy [Unknown]
  - Movement disorder [Unknown]
  - Nervous system disorder [Unknown]
  - Dry mouth [Not Recovered/Not Resolved]
  - Stomatitis [Unknown]
  - Lip pain [Not Recovered/Not Resolved]
  - Lip oedema [Not Recovered/Not Resolved]
